FAERS Safety Report 6080899-6 (Version None)
Quarter: 2009Q1

REPORT INFORMATION
  Report Type: 
  Country: None (occurrence: None)
  Receive Date: 20090217
  Receipt Date: 20090209
  Transmission Date: 20090719
  Serious: Yes (Other)
  Sender: FDA-Public Use
  Company Number: US-AMGEN-KDL330911

PATIENT
  Sex: Male

DRUGS (6)
  1. KINERET [Suspect]
     Indication: RHEUMATOID ARTHRITIS
     Route: 058
     Dates: start: 20080301
  2. FOLIC ACID [Concomitant]
  3. CALCIUM [Concomitant]
  4. PREDNISONE [Concomitant]
  5. METHOTREXATE [Concomitant]
  6. UNSPECIFIED MEDICATION [Concomitant]

REACTIONS (2)
  - DIPLOPIA [None]
  - VISUAL ACUITY REDUCED [None]
